FAERS Safety Report 9220930 (Version 1)
Quarter: 2013Q2

REPORT INFORMATION
  Report Type: Spontaneous
  Country: NL (occurrence: NL)
  Receive Date: 20130409
  Receipt Date: 20130409
  Transmission Date: 20140414
  Serious: Yes (Life-Threatening, Hospitalization)
  Sender: FDA-Public Use
  Company Number: NL-GLAXOSMITHKLINE-B0871301A

PATIENT
  Age: 37 Year
  Sex: Female
  Weight: 72 kg

DRUGS (14)
  1. ZANTAC [Suspect]
     Indication: PRODUCT USED FOR UNKNOWN INDICATION
     Dosage: 2ML WEEKLY
     Route: 042
     Dates: start: 20130201, end: 20130222
  2. OXYNORM [Concomitant]
     Dosage: 30MG FOUR TIMES PER DAY
     Route: 048
  3. OXYCONTIN [Concomitant]
     Dosage: 60MG THREE TIMES PER DAY
     Route: 048
  4. X-PRAEP [Concomitant]
     Dosage: 15ML PER DAY
     Route: 048
  5. LACTULOSE [Concomitant]
     Dosage: 12G THREE TIMES PER DAY
     Route: 048
  6. PARACETAMOL [Concomitant]
     Dosage: 1000MG THREE TIMES PER DAY
     Route: 048
  7. NORTRILEN [Concomitant]
     Dosage: 50MG PER DAY
     Route: 048
  8. PANTOPRAZOL [Concomitant]
     Dosage: 40MG PER DAY
     Route: 048
  9. GABAPENTIN [Concomitant]
     Dosage: 600MG THREE TIMES PER DAY
     Route: 048
  10. GRANISETRON [Concomitant]
     Dosage: 1MG WEEKLY
  11. PACLITAXEL [Concomitant]
     Dosage: 345MG WEEKLY
  12. CARBOPLATINE [Concomitant]
     Dosage: 870MG WEEKLY
  13. DEXAMETHASON [Concomitant]
     Dosage: 20MG WEEKLY
  14. TAVEGIL [Concomitant]
     Dosage: 2MG WEEKLY

REACTIONS (4)
  - Hypotension [Recovered/Resolved]
  - Hypersensitivity [Recovered/Resolved]
  - Dyspnoea [Recovered/Resolved]
  - Chest discomfort [Recovered/Resolved]
